FAERS Safety Report 14149812 (Version 1)
Quarter: 2017Q4

REPORT INFORMATION
  Report Type: Spontaneous
  Country: CA (occurrence: CA)
  Receive Date: 20171101
  Receipt Date: 20171101
  Transmission Date: 20180321
  Serious: Yes (Hospitalization)
  Sender: FDA-Public Use
  Company Number: CA-NOVOPROD-570143

PATIENT
  Sex: Female

DRUGS (2)
  1. VAGIFEM [Suspect]
     Active Substance: ESTRADIOL
     Indication: VULVOVAGINAL DRYNESS
     Dosage: DAILY FOR 2 WEEKS
     Route: 067
     Dates: start: 201705
  2. VAGIFEM [Suspect]
     Active Substance: ESTRADIOL
     Dosage: TWICE WEEKLY FOR 4 WEEKS
     Route: 067
     Dates: end: 201706

REACTIONS (2)
  - Anxiety [Recovered/Resolved]
  - Contraindicated drug prescribed [Unknown]
